FAERS Safety Report 7687172-0 (Version None)
Quarter: 2011Q3

REPORT INFORMATION
  Report Type: 
  Country: None (occurrence: None)
  Receive Date: 20110816
  Receipt Date: 20110809
  Transmission Date: 20111222
  Serious: Yes (Hospitalization)
  Sender: FDA-Public Use
  Company Number: US-BAXTER-2011BH026034

PATIENT
  Sex: Male

DRUGS (1)
  1. DIANEAL [Suspect]
     Indication: PERITONEAL DIALYSIS
     Route: 033

REACTIONS (6)
  - ANAPHYLACTIC SHOCK [None]
  - ANAEMIA [None]
  - MUSCLE SPASMS [None]
  - ASTHENIA [None]
  - NAUSEA [None]
  - VOMITING [None]
